FAERS Safety Report 10761191 (Version 3)
Quarter: 2016Q2

REPORT INFORMATION
  Report Type: Spontaneous
  Country: US (occurrence: US)
  Receive Date: 20150204
  Receipt Date: 20160408
  Transmission Date: 20160815
  Serious: Yes (Other)
  Sender: FDA-Public Use
  Company Number: US-PFIZER INC-2015042842

PATIENT
  Age: 60 Year
  Sex: Male

DRUGS (13)
  1. LYRICA [Suspect]
     Active Substance: PREGABALIN
     Indication: PAIN
     Dosage: 150 MG, 3X/DAY
     Route: 048
  2. VITAMIN D3 [Concomitant]
     Active Substance: CHOLECALCIFEROL
     Dosage: 2000 IU, DAILY
  3. ASPIRIN. [Concomitant]
     Active Substance: ASPIRIN
     Dosage: 81 MG, DAILY
  4. TRAMADOL ER [Concomitant]
     Active Substance: TRAMADOL HYDROCHLORIDE
     Indication: PAIN
     Dosage: 300 MG, DAILY
     Route: 048
  5. LYRICA [Suspect]
     Active Substance: PREGABALIN
     Indication: RADICULAR PAIN
  6. AMLODIPINE/BENAZEPRIL [Concomitant]
     Dosage: [AMLODIPINE 5]/[BENAZEPRIL 20], DAILY
  7. FISH OIL [Concomitant]
     Active Substance: FISH OIL
     Dosage: 1200 MG, DAILY
  8. ALLOPURINOL. [Concomitant]
     Active Substance: ALLOPURINOL
     Dosage: 300 MG, DAILY
  9. GLUCOSAMINE CHONDROITIN [Concomitant]
     Active Substance: CHONDROITIN SULFATE (BOVINE)\GLUCOSAMINE HYDROCHLORIDE
     Dosage: 1500 MG, DAILY
  10. HYDROCODONE [Concomitant]
     Active Substance: HYDROCODONE
     Dosage: HYDROCODONE 7.5/325, 4-6 HOURS PRN
     Route: 048
  11. VALIUM [Concomitant]
     Active Substance: DIAZEPAM
     Dosage: 5 MG, DAILY
  12. LIPITOR [Suspect]
     Active Substance: ATORVASTATIN CALCIUM
     Dosage: 20 MG, DAILY
  13. FLEXERIL [Concomitant]
     Active Substance: CYCLOBENZAPRINE HYDROCHLORIDE
     Indication: MUSCLE SPASMS
     Dosage: 10 MG EVERY 8 HOURS AS NEEDED

REACTIONS (21)
  - Tinnitus [Unknown]
  - Joint swelling [Unknown]
  - Movement disorder [Unknown]
  - Post laminectomy syndrome [Unknown]
  - Paraesthesia [Unknown]
  - Myalgia [Unknown]
  - Constipation [Unknown]
  - Pain in extremity [Unknown]
  - Myofascial pain syndrome [Unknown]
  - Weight increased [Unknown]
  - Vision blurred [Unknown]
  - Hypoaesthesia [Unknown]
  - Anxiety [Unknown]
  - Rash [Unknown]
  - Contusion [Unknown]
  - Arthralgia [Unknown]
  - Depression [Unknown]
  - Confusional state [Unknown]
  - Dizziness [Unknown]
  - Neck pain [Unknown]
  - Headache [Unknown]
